FAERS Safety Report 17033405 (Version 2)
Quarter: 2019Q4

REPORT INFORMATION
  Report Type: Spontaneous
  Country: US (occurrence: US)
  Receive Date: 20191114
  Receipt Date: 20191211
  Transmission Date: 20200122
  Serious: No
  Sender: FDA-Public Use
  Company Number: US-SA-2019SA313690

PATIENT
  Age: 61 Year
  Sex: Female

DRUGS (8)
  1. TRETINOIN. [Concomitant]
     Active Substance: TRETINOIN
  2. KEVZARA [Suspect]
     Active Substance: SARILUMAB
     Dosage: 200 MG, QOW
     Route: 058
  3. HYDROXYCHLOROQUINE [Concomitant]
     Active Substance: HYDROXYCHLOROQUINE
  4. KETOCONAZOLE. [Concomitant]
     Active Substance: KETOCONAZOLE
  5. MELOXICAM. [Concomitant]
     Active Substance: MELOXICAM
  6. AMOXICILLIN TRIHYDRATE;CLAVULANATE POTASSIUM [Concomitant]
     Active Substance: AMOXICILLIN\CLAVULANATE POTASSIUM
  7. CLOBETASOL 0.05% [Concomitant]
     Active Substance: CLOBETASOL
  8. FLECTOR [DICLOFENAC SODIUM] [Concomitant]
     Active Substance: DICLOFENAC SODIUM

REACTIONS (2)
  - Infection [Unknown]
  - Sinusitis [Recovered/Resolved]
